FAERS Safety Report 8178236-6 (Version None)
Quarter: 2012Q1

REPORT INFORMATION
  Report Type: 
  Country: None (occurrence: None)
  Receive Date: 20120301
  Receipt Date: 20120220
  Transmission Date: 20120608
  Serious: Yes (Death, Life-Threatening, Hospitalization, Other)
  Sender: FDA-Public Use
  Company Number: PHHY2012DE014808

PATIENT
  Sex: Male

DRUGS (14)
  1. BISOPROLOL FUMARATE [Concomitant]
     Dosage: 5 MG, PER DAY
     Route: 048
     Dates: start: 20071212
  2. CENTRALLY ACTING SYMPATHOMIMETICS [Concomitant]
  3. DIOVAN [Suspect]
     Indication: HYPERTENSION
     Dosage: 320 MG, PER DAY
     Route: 048
     Dates: start: 20091222
  4. TRENTAL [Concomitant]
     Dosage: 600 MG, PER DAY
     Route: 048
     Dates: start: 20090922
  5. THIENOPYRIDINE [Concomitant]
  6. METOPROLOL SUCCINATE [Concomitant]
     Dosage: 200 MG, PER DAY
     Route: 048
     Dates: start: 20050823, end: 20071212
  7. TORSEMIDE [Concomitant]
     Dosage: 15 MG, PER DAY
     Route: 048
     Dates: start: 20020805
  8. RASILEZ [Suspect]
     Indication: HYPERTENSION
     Dosage: 150 MG, PER DAY
     Route: 048
     Dates: start: 20091222, end: 20110310
  9. MOXONIDINE [Concomitant]
     Dosage: 0.6 MG, PER DAY
     Route: 048
     Dates: start: 20030610
  10. ASPIRIN [Concomitant]
     Dosage: 100 MG, PER DAY
     Route: 048
     Dates: start: 20011024
  11. INSULIN [Concomitant]
     Indication: DIABETES MELLITUS
     Route: 048
  12. RASILEZ [Suspect]
     Dosage: 300 MG, PER DAY
     Route: 048
     Dates: start: 20110310
  13. SIMVASTATIN [Concomitant]
     Dosage: 20 MG, PER DAY
     Route: 048
     Dates: start: 20010101
  14. NORVASC [Concomitant]
     Dosage: 10 MG, PER DAY
     Route: 048
     Dates: start: 20091222

REACTIONS (3)
  - GLYCOSYLATED HAEMOGLOBIN INCREASED [None]
  - SUDDEN CARDIAC DEATH [None]
  - ACUTE RESPIRATORY FAILURE [None]
